FAERS Safety Report 7075077-8 (Version None)
Quarter: 2010Q4

REPORT INFORMATION
  Report Type: 
  Country: None (occurrence: None)
  Receive Date: 20101029
  Receipt Date: 20100407
  Transmission Date: 20110411
  Serious: No
  Sender: FDA-Public Use
  Company Number: US-WYE-H13922910

PATIENT
  Age: 83 Year
  Sex: Male
  Weight: 65.83 kg

DRUGS (1)
  1. ADVIL PM [Suspect]
     Indication: SLEEP DISORDER
     Route: 048
     Dates: start: 20100225, end: 20100227

REACTIONS (1)
  - DRUG INEFFECTIVE [None]
